FAERS Safety Report 18451090 (Version 2)
Quarter: 2020Q4

REPORT INFORMATION
  Report Type: Spontaneous
  Country: US (occurrence: US)
  Receive Date: 20201102
  Receipt Date: 20201106
  Transmission Date: 20210114
  Serious: Yes (Hospitalization, Other)
  Sender: FDA-Public Use
  Company Number: US-SA-2020SA305156

PATIENT

DRUGS (6)
  1. LIDOCAINE. [Suspect]
     Active Substance: LIDOCAINE
     Indication: ANAESTHESIA PROCEDURE
     Route: 048
  2. PROPOFOL. [Concomitant]
     Active Substance: PROPOFOL
     Indication: ANAESTHESIA PROCEDURE
  3. OXYGEN. [Concomitant]
     Active Substance: OXYGEN
     Indication: OXYGEN THERAPY
  4. ACETYLSALICYLIC ACID [Suspect]
     Active Substance: ASPIRIN
     Indication: CARDIOVASCULAR EVENT PROPHYLAXIS
     Dosage: 81 MG, QD
  5. OXYGEN. [Concomitant]
     Active Substance: OXYGEN
     Indication: HYPOXIA
     Dosage: 3 L, QMN
  6. PROPOFOL. [Concomitant]
     Active Substance: PROPOFOL

REACTIONS (6)
  - Airway complication of anaesthesia [Recovered/Resolved]
  - Bronchial haemorrhage [Recovered/Resolved]
  - Haemoptysis [Recovered/Resolved]
  - Hypoxia [Recovered/Resolved]
  - Petechiae [Recovered/Resolved]
  - Condition aggravated [Recovered/Resolved]
